FAERS Safety Report 8061691-X (Version None)
Quarter: 2012Q1

REPORT INFORMATION
  Report Type: 
  Country: None (occurrence: None)
  Receive Date: 20120123
  Receipt Date: 20120111
  Transmission Date: 20120608
  Serious: Yes (Hospitalization)
  Sender: FDA-Public Use
  Company Number: US-BIOGENIDEC-2011BI048991

PATIENT
  Age: 48 Year
  Sex: Female

DRUGS (11)
  1. TYSABRI [Suspect]
     Indication: MULTIPLE SCLEROSIS
     Route: 042
     Dates: start: 20110822
  2. LITHIUM [Concomitant]
     Route: 048
  3. XANAX [Concomitant]
     Route: 048
  4. CARAFATE [Concomitant]
     Route: 048
  5. SOMA [Concomitant]
     Route: 048
  6. LITHIUM [Concomitant]
     Route: 048
  7. ZYPREXA [Concomitant]
  8. TRAMADOL HCL [Concomitant]
     Route: 048
  9. DURAGESIC-100 [Concomitant]
     Route: 062
  10. BACTROBAN [Concomitant]
  11. LYRICA [Concomitant]
     Route: 048

REACTIONS (2)
  - HAEMORRHAGIC ANAEMIA [None]
  - ANASTOMOTIC ULCER HAEMORRHAGE [None]
